FAERS Safety Report 10410308 (Version 2)
Quarter: 2014Q4

REPORT INFORMATION
  Report Type: Spontaneous
  Country: US (occurrence: US)
  Receive Date: 20140826
  Receipt Date: 20141030
  Transmission Date: 20150528
  Serious: Yes (Other)
  Sender: FDA-Public Use
  Company Number: US-PFIZER INC-2014233256

PATIENT
  Age: 42 Year
  Sex: Female

DRUGS (3)
  1. SOMAVERT [Suspect]
     Active Substance: PEGVISOMANT
     Dosage: SOMETIME
     Dates: start: 2011, end: 2011
  2. SOMAVERT [Suspect]
     Active Substance: PEGVISOMANT
     Indication: ACROMEGALY
     Dosage: 40 MG, DAILY
     Route: 058
     Dates: start: 200903
  3. SOMAVERT [Suspect]
     Active Substance: PEGVISOMANT
     Dosage: UNK
     Dates: start: 201207

REACTIONS (3)
  - Cerebrovascular accident [Unknown]
  - Neoplasm [Unknown]
  - Brain stem haemorrhage [Unknown]

NARRATIVE: CASE EVENT DATE: 201403
